FAERS Safety Report 4909762-8 (Version None)
Quarter: 2006Q1

REPORT INFORMATION
  Report Type: 
  Country: None (occurrence: None)
  Receive Date: 20060213
  Receipt Date: 20060203
  Transmission Date: 20060701
  Serious: Yes (Hospitalization, Other)
  Sender: FDA-Public Use
  Company Number: US-MERCK-0602USA01381

PATIENT
  Age: 53 Year
  Sex: Female
  Weight: 64 kg

DRUGS (4)
  1. VIOXX [Suspect]
     Indication: RHEUMATOID ARTHRITIS
     Route: 048
     Dates: start: 20000309, end: 20040901
  2. METHOTREXATE [Concomitant]
     Route: 065
  3. PREDNISONE [Concomitant]
     Route: 065
  4. PREVACID [Concomitant]
     Route: 065

REACTIONS (5)
  - ANEURYSM RUPTURED [None]
  - CEREBRAL THROMBOSIS [None]
  - INTRACRANIAL ANEURYSM [None]
  - PNEUMONIA [None]
  - SUBARACHNOID HAEMORRHAGE [None]
